FAERS Safety Report 10405121 (Version 1)
Quarter: 2014Q3

REPORT INFORMATION
  Report Type: Report from Study
  Country: US (occurrence: None)
  Receive Date: 20140820
  Receipt Date: 20140820
  Transmission Date: 20150326
  Serious: Yes (Hospitalization, Other)
  Sender: FDA-Public Use
  Company Number: VAL_03333_2014

PATIENT
  Age: 64 Year
  Sex: Male

DRUGS (52)
  1. PREDNISONE. [Suspect]
     Active Substance: PREDNISONE
     Indication: PRODUCT USED FOR UNKNOWN INDICATION
     Dosage: DF
  2. HYTRIN [Concomitant]
     Active Substance: TERAZOSIN HYDROCHLORIDE
  3. MIRALAX [Concomitant]
     Active Substance: POLYETHYLENE GLYCOL 3350
  4. WARFARIN [Concomitant]
     Active Substance: WARFARIN
  5. BACTRIM [Concomitant]
     Active Substance: SULFAMETHOXAZOLE\TRIMETHOPRIM
  6. ESMOLOL [Concomitant]
     Active Substance: ESMOLOL HYDROCHLORIDE
  7. ANCEF [Concomitant]
     Active Substance: CEFAZOLIN SODIUM
  8. ROCURONIUM [Concomitant]
     Active Substance: ROCURONIUM BROMIDE
  9. SENNOSIDE [Concomitant]
     Active Substance: SENNOSIDES
  10. CLONIDINE. [Concomitant]
     Active Substance: CLONIDINE
  11. LIDOCAINE. [Suspect]
     Active Substance: LIDOCAINE
     Indication: PRODUCT USED FOR UNKNOWN INDICATION
     Dosage: DF
  12. SIMULECT [Suspect]
     Active Substance: BASILIXIMAB
     Indication: PRODUCT USED FOR UNKNOWN INDICATION
     Dosage: DF
  13. TAMSULOSIN [Suspect]
     Active Substance: TAMSULOSIN
     Indication: PRODUCT USED FOR UNKNOWN INDICATION
     Dosage: DF
  14. RENVELA [Concomitant]
     Active Substance: SEVELAMER CARBONATE
  15. ALBUMIN [Concomitant]
     Active Substance: ALBUMIN (HUMAN)
  16. ZOFRAN [Concomitant]
     Active Substance: ONDANSETRON HYDROCHLORIDE
  17. GANCICLOVIR [Concomitant]
     Active Substance: GANCICLOVIR
  18. CELLCEPT [Concomitant]
     Active Substance: MYCOPHENOLATE MOFETIL\MYCOPHENOLATE MOFETIL HYDROCHLORIDE
  19. METOPROLOL [Suspect]
     Active Substance: METOPROLOL
     Indication: PRODUCT USED FOR UNKNOWN INDICATION
     Dosage: DF, 50 MG BID
  20. BUMETANIDE. [Suspect]
     Active Substance: BUMETANIDE
     Indication: PRODUCT USED FOR UNKNOWN INDICATION
     Dosage: DF
  21. CARDIZEM [Concomitant]
     Active Substance: DILTIAZEM HYDROCHLORIDE
  22. SODIUM POLYSTYRENE SULFONATE. [Concomitant]
     Active Substance: SODIUM POLYSTYRENE SULFONATE
  23. NYSTATIN. [Suspect]
     Active Substance: NYSTATIN
     Indication: PRODUCT USED FOR UNKNOWN INDICATION
     Dosage: DF
  24. NEPHRO-VITE [Concomitant]
  25. SOLU-MEDROL [Concomitant]
     Active Substance: METHYLPREDNISOLONE SODIUM SUCCINATE
  26. TACROLIMUS. [Suspect]
     Active Substance: TACROLIMUS
     Indication: PRODUCT USED FOR UNKNOWN INDICATION
     Dosage: DF
  27. ACETAMINOPHEN. [Suspect]
     Active Substance: ACETAMINOPHEN
     Indication: PRODUCT USED FOR UNKNOWN INDICATION
     Dosage: DF
  28. PRAVASTATIN [Suspect]
     Active Substance: PRAVASTATIN\PRAVASTATIN SODIUM
     Indication: PRODUCT USED FOR UNKNOWN INDICATION
     Dosage: DF
  29. VERSED [Concomitant]
     Active Substance: MIDAZOLAM HYDROCHLORIDE
  30. NEOSTIGMINE [Concomitant]
     Active Substance: NEOSTIGMINE
  31. DOCUSATE [Concomitant]
     Active Substance: DOCUSATE
  32. HYDROCODONE BITARTRATE AND ACETAMINOPHEN [Concomitant]
     Active Substance: ACETAMINOPHEN\HYDROCODONE BITARTRATE
  33. DESMOPRESSIN [Concomitant]
     Active Substance: DESMOPRESSIN
  34. FUROSEMIDE. [Concomitant]
     Active Substance: FUROSEMIDE
  35. INSULIN GLARGINE [Concomitant]
     Active Substance: INSULIN GLARGINE
  36. FLOMAX [Concomitant]
     Active Substance: TAMSULOSIN HYDROCHLORIDE
  37. CEFEPIME [Suspect]
     Active Substance: CEFEPIME\CEFEPIME HYDROCHLORIDE
     Indication: PRODUCT USED FOR UNKNOWN INDICATION
     Dosage: DF
  38. SENSIPAR [Concomitant]
     Active Substance: CINACALCET HYDROCHLORIDE
  39. SEVOFLURANE. [Concomitant]
     Active Substance: SEVOFLURANE
  40. PANTOPRAZOLE [Concomitant]
     Active Substance: PANTOPRAZOLE SODIUM
  41. NIFEDIPINE. [Concomitant]
     Active Substance: NIFEDIPINE
  42. PRILOSEC [Concomitant]
     Active Substance: OMEPRAZOLE MAGNESIUM
  43. METHYLPREDNISOLONE [Concomitant]
     Active Substance: METHYLPREDNISOLONE
  44. ANTITHYMOCYTE IMMUNOGLOBULIN [Concomitant]
     Active Substance: THYMOCYTE IMMUNE GLOBULIN NOS
  45. LISINOPRIL. [Suspect]
     Active Substance: LISINOPRIL
     Indication: PRODUCT USED FOR UNKNOWN INDICATION
     Dosage: DF
  46. COUMADIN [Concomitant]
     Active Substance: WARFARIN SODIUM
  47. PROPOFOL. [Concomitant]
     Active Substance: PROPOFOL
  48. GLYCOPYRROLATE. [Concomitant]
     Active Substance: GLYCOPYRROLATE
  49. COTRIMOXAZOLE [Concomitant]
     Active Substance: SULFAMETHOXAZOLE\TRIMETHOPRIM
  50. FERRLECIT [Concomitant]
     Active Substance: SODIUM FERRIC GLUCONATE COMPLEX
  51. HYDROMORPHONE [Concomitant]
     Active Substance: HYDROMORPHONE
  52. VALCYTE [Concomitant]
     Active Substance: VALGANCICLOVIR HYDROCHLORIDE

REACTIONS (30)
  - Immunosuppressant drug level increased [None]
  - Metabolic acidosis [None]
  - Electrocardiogram T wave peaked [None]
  - Hypotension [None]
  - International normalised ratio increased [None]
  - Dehydration [None]
  - Conjunctivitis [None]
  - Leukopenia [None]
  - Chest pain [None]
  - Wound dehiscence [None]
  - Urinary tract infection [None]
  - Cough [None]
  - Hypervolaemia [None]
  - Hyperkalaemia [None]
  - Complications of transplanted kidney [None]
  - Bradycardia [None]
  - Diarrhoea [None]
  - Renal necrosis [None]
  - Procedural haemorrhage [None]
  - Hyperglycaemia [None]
  - Atrial fibrillation [None]
  - Renal failure acute [None]
  - Wound infection [None]
  - Tachycardia [None]
  - Pseudomonas infection [None]
  - Prostatomegaly [None]
  - Procedural pain [None]
  - Pulmonary congestion [None]
  - Haemodialysis [None]
  - Enterococcal infection [None]

NARRATIVE: CASE EVENT DATE: 20130225
